FAERS Safety Report 9871534 (Version 3)
Quarter: 2014Q1

REPORT INFORMATION
  Report Type: Spontaneous
  Country: US (occurrence: US)
  Receive Date: 20140205
  Receipt Date: 20140211
  Transmission Date: 20141002
  Serious: Yes (Other)
  Sender: FDA-Public Use
  Company Number: PHHY2013US149971

PATIENT
  Sex: Female

DRUGS (12)
  1. LIORESAL INTRATECAL [Suspect]
     Indication: MUSCLE SPASTICITY
     Dosage: 499.6 UG, DAILY
     Route: 037
     Dates: start: 20090921
  2. LIORESAL INTRATECAL [Suspect]
     Dosage: 250 UG, DAILY
     Route: 037
  3. TIZANIDINE [Suspect]
     Dosage: UNK UKN, UNK
     Route: 048
  4. GABAPENTIN [Suspect]
     Dosage: UNK UKN, UNK
     Route: 048
  5. SENNA [Suspect]
     Dosage: UNK UKN, UNK
     Route: 048
  6. FERROUS SULFATE [Suspect]
     Dosage: UNK UKN, UNK
     Route: 048
  7. PROTEIN [Suspect]
     Dosage: UNK UKN, UNK
     Route: 048
  8. LEVOTHYROXINE [Suspect]
     Dosage: UNK UKN, UNK
     Route: 048
  9. POLYETHYLENE GLYCOL [Suspect]
     Dosage: UNK UKN, UNK
     Route: 048
  10. LIQUID TEARS [Suspect]
     Dosage: UNK UKN, UNK
     Route: 048
  11. VALIUM [Suspect]
     Dosage: UNK UKN, UNK
     Route: 048
  12. FEXOFENADINE [Suspect]
     Dosage: UNK UKN, UNK
     Route: 048

REACTIONS (7)
  - Urosepsis [Unknown]
  - Wound sepsis [Unknown]
  - Hypotension [Unknown]
  - Bradycardia [Unknown]
  - Hypothermia [Unknown]
  - Hypertension [Unknown]
  - Catheter site infection [Unknown]
